FAERS Safety Report 15886979 (Version 1)
Quarter: 2019Q1

REPORT INFORMATION
  Report Type: Spontaneous
  Country: GB (occurrence: GB)
  Receive Date: 20190130
  Receipt Date: 20190130
  Transmission Date: 20190417
  Serious: Yes (Hospitalization)
  Sender: FDA-Public Use
  Company Number: GB-ROCHE-2252892

PATIENT
  Sex: Female

DRUGS (2)
  1. OMALIZUMAB. [Suspect]
     Active Substance: OMALIZUMAB
     Indication: PRODUCT USED FOR UNKNOWN INDICATION
     Route: 065
     Dates: start: 20180103
  2. OMALIZUMAB. [Suspect]
     Active Substance: OMALIZUMAB
     Route: 065
     Dates: start: 20181218

REACTIONS (6)
  - Dyspnoea [Unknown]
  - Influenza [Recovered/Resolved]
  - Cough [Unknown]
  - Wheezing [Unknown]
  - Productive cough [Unknown]
  - Pyrexia [Unknown]

NARRATIVE: CASE EVENT DATE: 20181221
